FAERS Safety Report 16880778 (Version 1)
Quarter: 2019Q4

REPORT INFORMATION
  Report Type: Spontaneous
  Country: US (occurrence: US)
  Receive Date: 20190807
  Receipt Date: 20190807
  Transmission Date: 20200122
  Serious: No
  Sender: FDA-Public Use
  Company Number: None

PATIENT
  Age: 81 Year
  Sex: Male

DRUGS (1)
  1. AFINITOR [Suspect]
     Active Substance: EVEROLIMUS
     Route: 048
     Dates: start: 20180521

REACTIONS (3)
  - Constipation [None]
  - Vomiting [None]
  - Gastrointestinal hypomotility [None]

NARRATIVE: CASE EVENT DATE: 20190807
